FAERS Safety Report 9885877 (Version 1)
Quarter: 2014Q1

REPORT INFORMATION
  Report Type: Report from Study
  Country: US (occurrence: US)
  Receive Date: 20140210
  Receipt Date: 20140210
  Transmission Date: 20141002
  Serious: Yes (Hospitalization)
  Sender: FDA-Public Use
  Company Number: US-GLAXOSMITHKLINE-A0969211B

PATIENT
  Age: 40 Year
  Sex: Male
  Weight: 70.8 kg

DRUGS (5)
  1. DABRAFENIB [Suspect]
     Indication: METASTATIC MALIGNANT MELANOMA
     Dosage: 150MG TWICE PER DAY
     Route: 048
     Dates: start: 20120110
  2. TRAMETINIB [Suspect]
     Indication: METASTATIC MALIGNANT MELANOMA
     Dosage: 2MG PER DAY
     Route: 048
     Dates: start: 20120208
  3. HEPARIN [Concomitant]
     Indication: COAGULOPATHY
     Dosage: 5000U PER DAY
     Route: 058
     Dates: start: 20120430, end: 20120501
  4. MORPHINE EXTENDED RELIEF [Concomitant]
     Indication: PAIN
     Dosage: 60MG TWICE PER DAY
     Route: 048
     Dates: start: 20120501, end: 20120501
  5. DIAZEPAM [Concomitant]
     Indication: ANXIETY
     Dosage: 2MG TWICE PER DAY
     Route: 048
     Dates: start: 20120207, end: 20120703

REACTIONS (1)
  - Influenza like illness [Recovered/Resolved]
